FAERS Safety Report 9114813 (Version 1)
Quarter: 2013Q1

REPORT INFORMATION
  Report Type: Spontaneous
  Country: JP (occurrence: JP)
  Receive Date: 20130208
  Receipt Date: 20130208
  Transmission Date: 20140127
  Serious: Yes (Death)
  Sender: FDA-Public Use
  Company Number: JP-PFIZER INC-2012103709

PATIENT
  Age: 78 Year
  Sex: Male

DRUGS (1)
  1. OXALIPLATIN [Suspect]
     Dosage: UNK

REACTIONS (2)
  - Thrombocytopenia [Fatal]
  - Haemorrhage [Fatal]
